FAERS Safety Report 10744091 (Version 2)
Quarter: 2015Q1

REPORT INFORMATION
  Report Type: Spontaneous
  Country: BR (occurrence: BR)
  Receive Date: 20150128
  Receipt Date: 20150205
  Transmission Date: 20150721
  Serious: Yes (Other)
  Sender: FDA-Public Use
  Company Number: PHHY2015BR009194

PATIENT
  Age: 79 Year
  Sex: Female

DRUGS (4)
  1. AROPAX [Concomitant]
     Active Substance: PAROXETINE HYDROCHLORIDE
     Indication: RELAXATION THERAPY
     Dosage: 1 DF, QD
     Route: 048
     Dates: start: 201408
  2. EXELON PATCH [Suspect]
     Active Substance: RIVASTIGMINE
     Indication: DEMENTIA ALZHEIMER^S TYPE
     Dosage: 13.3 MG, QD (27MG/15CM2)
     Route: 062
     Dates: start: 201103
  3. EXELON PATCH [Suspect]
     Active Substance: RIVASTIGMINE
     Dosage: 1 DF, Q48H
     Route: 062
  4. NEOZINE [Concomitant]
     Active Substance: LEVOMEPROMAZINE
     Indication: RELAXATION THERAPY
     Dosage: 4 GTT, QD
     Route: 048
     Dates: start: 201408

REACTIONS (7)
  - Off label use [Unknown]
  - Urinary tract infection [Recovered/Resolved]
  - Dysstasia [Not Recovered/Not Resolved]
  - Inappropriate schedule of drug administration [Unknown]
  - Muscular weakness [Unknown]
  - Nosocomial infection [Recovered/Resolved]
  - Thrombosis [Recovered/Resolved]

NARRATIVE: CASE EVENT DATE: 20130825
